FAERS Safety Report 16629191 (Version 1)
Quarter: 2019Q3

REPORT INFORMATION
  Report Type: Spontaneous
  Country: GB (occurrence: GB)
  Receive Date: 20190725
  Receipt Date: 20190725
  Transmission Date: 20191004
  Serious: Yes (Hospitalization, Other)
  Sender: FDA-Public Use
  Company Number: PHHY2019GB167274

PATIENT
  Age: 19 Year
  Sex: Male
  Weight: 57 kg

DRUGS (2)
  1. MELATONIN [Concomitant]
     Active Substance: MELATONIN
     Indication: PRODUCT USED FOR UNKNOWN INDICATION
     Dosage: UNK
     Route: 065
  2. RISPERIDONE. [Suspect]
     Active Substance: RISPERIDONE
     Indication: PSYCHOTIC SYMPTOM
     Dosage: 3 MG, UNK
     Route: 065
     Dates: start: 20190412, end: 20190414

REACTIONS (5)
  - Dystonia [Recovered/Resolved]
  - Facial spasm [Recovered/Resolved]
  - Agitation [Unknown]
  - Product prescribing error [Unknown]
  - Pain [Unknown]

NARRATIVE: CASE EVENT DATE: 20190414
